FAERS Safety Report 9904385 (Version 2)
Quarter: 2014Q1

REPORT INFORMATION
  Report Type: Report from Study
  Country: AU (occurrence: AU)
  Receive Date: 20140218
  Receipt Date: 20140313
  Transmission Date: 20141002
  Serious: Yes (Death)
  Sender: FDA-Public Use
  Company Number: AU-ROCHE-1351611

PATIENT
  Age: 41 Year
  Sex: Male

DRUGS (1)
  1. AVASTIN [Suspect]
     Indication: GLIOMA
     Dosage: LAST DOSE ON 23/APR/2013
     Route: 065
     Dates: start: 20120326

REACTIONS (1)
  - Glioblastoma multiforme [Fatal]
